FAERS Safety Report 14070171 (Version 1)
Quarter: 2017Q4

REPORT INFORMATION
  Report Type: Spontaneous
  Country: FR (occurrence: FR)
  Receive Date: 20171010
  Receipt Date: 20171010
  Transmission Date: 20180321
  Serious: Yes (Other)
  Sender: FDA-Public Use
  Company Number: FR-BAYER-2017-187875

PATIENT
  Age: 30 Year
  Sex: Female

DRUGS (1)
  1. MIRENA [Suspect]
     Active Substance: LEVONORGESTREL
     Indication: CONTRACEPTION
     Dosage: 20 MCG/24HR, CONT
     Route: 015
     Dates: start: 20080618, end: 20170912

REACTIONS (8)
  - Panic attack [Unknown]
  - Anxiety [Unknown]
  - Bartholinitis [Unknown]
  - Fatigue [Unknown]
  - Vision blurred [Unknown]
  - Myalgia [Unknown]
  - Folliculitis [Unknown]
  - Irritability [Unknown]

NARRATIVE: CASE EVENT DATE: 2010
